FAERS Safety Report 5100649-7 (Version None)
Quarter: 2006Q3

REPORT INFORMATION
  Report Type: 
  Country: None (occurrence: None)
  Receive Date: 20060731
  Receipt Date: 20050627
  Transmission Date: 20061208
  Serious: Yes (Other)
  Sender: FDA-Public Use
  Company Number: 215256

PATIENT
  Age: 63 Year

DRUGS (3)
  1. RITUXAN [Suspect]
     Indication: CHRONIC LYMPHOCYTIC LEUKAEMIA
     Dosage: 735 MG
     Dates: start: 20050519
  2. RITUXAN [Suspect]
  3. FLUDARABINE (FLUDARABINE PROSPHATE) [Concomitant]

REACTIONS (3)
  - CHILLS [None]
  - DYSPNOEA [None]
  - FLUSHING [None]
